FAERS Safety Report 25932854 (Version 2)
Quarter: 2025Q4

REPORT INFORMATION
  Report Type: Report from Study
  Country: EU (occurrence: EU)
  Receive Date: 20251017
  Receipt Date: 20251023
  Transmission Date: 20260117
  Serious: Yes (Hospitalization)
  Sender: ABBVIE
  Company Number: EU-ABBVIE-6505701

PATIENT
  Age: 82 Year
  Sex: Male

DRUGS (3)
  1. FOSCARBIDOPA\FOSLEVODOPA [Suspect]
     Active Substance: FOSCARBIDOPA\FOSLEVODOPA
     Indication: Parkinson^s disease
     Dosage: CR 0.49 ML/H; CR HIGH 0.51 ML/H; CR LOW 0.20 ML/H; ED 0.25 ML
     Route: 058
     Dates: start: 20250408
  2. MIRABEGRON [Concomitant]
     Active Substance: MIRABEGRON
     Indication: Product used for unknown indication
     Dosage: IN EVENING
  3. Vesisol [Concomitant]
     Indication: Product used for unknown indication
     Dosage: IN MORNING

REACTIONS (3)
  - Clostridial infection [Unknown]
  - Femoral neck fracture [Recovering/Resolving]
  - Fall [Recovered/Resolved]

NARRATIVE: CASE EVENT DATE: 20251001
